FAERS Safety Report 4616644-8 (Version None)
Quarter: 2005Q1

REPORT INFORMATION
  Report Type: 
  Country: None (occurrence: None)
  Receive Date: 20050321
  Receipt Date: 20040826
  Transmission Date: 20050727
  Serious: No
  Sender: FDA-Public Use
  Company Number: 8799

PATIENT
  Sex: Female

DRUGS (2)
  1. MIDAZOLAM [Suspect]
     Indication: LABOUR PAIN
     Dosage: 2 MG IT
     Route: 037
  2. FENTANYL [Suspect]
     Indication: LABOUR PAIN
     Dosage: 10 MICROGRAM IT
     Route: 037

REACTIONS (2)
  - DRUG EXPOSURE DURING PREGNANCY [None]
  - FOETAL DISTRESS SYNDROME [None]
